FAERS Safety Report 12967788 (Version 1)
Quarter: 2016Q4

REPORT INFORMATION
  Report Type: Spontaneous
  Country: US (occurrence: US)
  Receive Date: 20161122
  Receipt Date: 20161122
  Transmission Date: 20170207
  Serious: Yes (Other)
  Sender: FDA-Public Use
  Company Number: None

PATIENT
  Age: 49 Year
  Sex: Female
  Weight: 74.25 kg

DRUGS (1)
  1. CELECOXIB. [Suspect]
     Active Substance: CELECOXIB
     Indication: AUTOIMMUNE ARTHRITIS
     Dosage: ?          QUANTITY:1 CAPSULE(S); EVERY 12 HOURS?
     Route: 048
     Dates: start: 20161108

REACTIONS (3)
  - Pain [None]
  - Swelling [None]
  - Product substitution issue [None]

NARRATIVE: CASE EVENT DATE: 20161108
